FAERS Safety Report 19504425 (Version 1)
Quarter: 2021Q3

REPORT INFORMATION
  Report Type: Other
  Country: ES (occurrence: ES)
  Receive Date: 20210707
  Receipt Date: 20210707
  Transmission Date: 20211014
  Serious: Yes (Other)
  Sender: FDA-Public Use
  Company Number: ES-B.BRAUN MEDICAL INC.-2113561

PATIENT
  Age: 36 Year
  Sex: Female

DRUGS (3)
  1. DIAZOXIDE [Concomitant]
     Active Substance: DIAZOXIDE
  2. DEXTROSE INJECTIONS USP 0264?7510?00 0264?7510?20 [Suspect]
     Active Substance: DEXTROSE
     Indication: HYPOGLYCAEMIA
     Route: 042
  3. SOMATOSTATIN [Concomitant]
     Active Substance: SOMATOSTATIN

REACTIONS (2)
  - Hypokalaemia [None]
  - Metabolic acidosis [None]
